FAERS Safety Report 21638661 (Version 1)
Quarter: 2022Q4

REPORT INFORMATION
  Report Type: Spontaneous
  Country: CZ (occurrence: CZ)
  Receive Date: 20221124
  Receipt Date: 20221124
  Transmission Date: 20230112
  Serious: Yes (Other)
  Sender: FDA-Public Use
  Company Number: CZ-SUN PHARMACEUTICAL INDUSTRIES LTD-2022RR-365013

PATIENT
  Age: 64 Year
  Sex: Male

DRUGS (4)
  1. BORTEZOMIB [Suspect]
     Active Substance: BORTEZOMIB
     Indication: Plasma cell myeloma
     Dosage: 1 DOSAGE FORM, WEEKLY
     Route: 065
     Dates: start: 20201126, end: 202107
  2. LENALIDOMIDE [Suspect]
     Active Substance: LENALIDOMIDE
     Indication: Plasma cell myeloma
     Dosage: 25 MILLIGRAM, WEEKLY
     Route: 065
     Dates: start: 20201126, end: 202107
  3. LENALIDOMIDE [Suspect]
     Active Substance: LENALIDOMIDE
     Dosage: 10 MILLIGRAM, WEEKLY
     Route: 065
     Dates: start: 202107, end: 202111
  4. DEXAMETHASONE [Suspect]
     Active Substance: DEXAMETHASONE
     Indication: Plasma cell myeloma
     Dosage: 20 MILLIGRAM, WEEKLY
     Route: 065
     Dates: start: 20221126

REACTIONS (2)
  - Therapeutic product effect incomplete [Unknown]
  - Hyperbilirubinaemia [Recovering/Resolving]
